FAERS Safety Report 13644594 (Version 1)
Quarter: 2017Q2

REPORT INFORMATION
  Report Type: Spontaneous
  Country: US (occurrence: US)
  Receive Date: 20170612
  Receipt Date: 20170612
  Transmission Date: 20170830
  Serious: No
  Sender: FDA-Public Use
  Company Number: US-ROCHE-1298797

PATIENT
  Sex: Female

DRUGS (2)
  1. DILAUDID [Concomitant]
     Active Substance: HYDROMORPHONE HYDROCHLORIDE
  2. XELODA [Suspect]
     Active Substance: CAPECITABINE
     Indication: BREAST CANCER
     Dosage: DOSE: 3 TABLETS; IN MORNING AND EVENING, 14 DAYS ON, 7 DAYS OFF
     Route: 048
     Dates: start: 20130907

REACTIONS (1)
  - Burning sensation [Not Recovered/Not Resolved]
